FAERS Safety Report 5604362-9 (Version None)
Quarter: 2008Q1

REPORT INFORMATION
  Report Type: 
  Country: None (occurrence: None)
  Receive Date: 20080123
  Receipt Date: 20080123
  Transmission Date: 20080703
  Serious: Yes (Other)
  Sender: FDA-Public Use
  Company Number: None

PATIENT
  Age: 60 Year
  Sex: Female
  Weight: 72.5755 kg

DRUGS (1)
  1. CHANTIX [Suspect]
     Indication: SMOKING CESSATION THERAPY
     Dosage: 1 1 PO
     Route: 048
     Dates: start: 20070501, end: 20070502

REACTIONS (3)
  - DRUG INTERACTION [None]
  - DYSPNOEA [None]
  - RESPIRATORY DISORDER [None]
